FAERS Safety Report 19959402 (Version 1)
Quarter: 2021Q4

REPORT INFORMATION
  Report Type: Spontaneous
  Country: US (occurrence: US)
  Receive Date: 20211015
  Receipt Date: 20211015
  Transmission Date: 20220303
  Serious: No
  Sender: FDA-Public Use
  Company Number: None

PATIENT
  Age: 73 Year
  Sex: Male
  Weight: 72.1 kg

DRUGS (1)
  1. NEULASTA [Suspect]
     Active Substance: PEGFILGRASTIM
     Indication: Pancreatic carcinoma
     Route: 058
     Dates: start: 20210930, end: 20210930

REACTIONS (2)
  - Device malfunction [None]
  - Product dose omission issue [None]

NARRATIVE: CASE EVENT DATE: 20210930
